FAERS Safety Report 20454871 (Version 1)
Quarter: 2022Q1

REPORT INFORMATION
  Report Type: Spontaneous
  Country: US (occurrence: US)
  Receive Date: 20220210
  Receipt Date: 20220210
  Transmission Date: 20220423
  Serious: Yes (Hospitalization)
  Sender: FDA-Public Use
  Company Number: US-MYLANLABS-2022M1010937

PATIENT
  Age: 65 Year
  Sex: Female

DRUGS (4)
  1. MYCOPHENOLATE MOFETIL [Suspect]
     Active Substance: MYCOPHENOLATE MOFETIL
     Indication: Cryoglobulinaemia
     Dosage: UNK
     Route: 065
  2. INTERFERON [Concomitant]
     Active Substance: INTERFERON
     Indication: Hepatitis C
     Dosage: UNK
     Route: 065
  3. RIBAVIRIN [Concomitant]
     Active Substance: RIBAVIRIN
     Indication: Hepatitis C
     Dosage: UNK
     Route: 065
  4. SOFOSBUVIR [Concomitant]
     Active Substance: SOFOSBUVIR
     Indication: Hepatitis C
     Dosage: UNK
     Route: 065

REACTIONS (6)
  - Rebound effect [Recovering/Resolving]
  - Cryoglobulinaemia [Recovering/Resolving]
  - Vasculitis [Recovering/Resolving]
  - Acute kidney injury [Recovering/Resolving]
  - Glomerulonephritis membranoproliferative [Recovering/Resolving]
  - Off label use [Unknown]
